FAERS Safety Report 9214780 (Version 6)
Quarter: 2016Q2

REPORT INFORMATION
  Report Type: Spontaneous
  Country: US (occurrence: US)
  Receive Date: 20130405
  Receipt Date: 20160412
  Transmission Date: 20160815
  Serious: Yes (Disabling)
  Sender: FDA-Public Use
  Company Number: US-009507513-1205USA01959

PATIENT
  Sex: Male

DRUGS (2)
  1. PROPECIA [Suspect]
     Active Substance: FINASTERIDE
     Indication: ANDROGENETIC ALOPECIA
  2. PROPECIA [Suspect]
     Active Substance: FINASTERIDE
     Indication: ALOPECIA
     Dosage: 1 MG, QD
     Route: 048
     Dates: start: 200311, end: 20120508

REACTIONS (14)
  - Semen volume decreased [Not Recovered/Not Resolved]
  - Nervousness [Unknown]
  - Loss of libido [Not Recovered/Not Resolved]
  - Somnolence [Unknown]
  - Erectile dysfunction [Not Recovered/Not Resolved]
  - Stress [Unknown]
  - Erectile dysfunction [Unknown]
  - Sleep apnoea syndrome [Unknown]
  - Depression [Unknown]
  - Ejaculation disorder [Unknown]
  - Limb injury [Unknown]
  - Tremor [Unknown]
  - Headache [Unknown]
  - Sexual dysfunction [Unknown]

NARRATIVE: CASE EVENT DATE: 2004
